FAERS Safety Report 20936676 (Version 3)
Quarter: 2022Q3

REPORT INFORMATION
  Report Type: Spontaneous
  Country: JP (occurrence: JP)
  Receive Date: 20220609
  Receipt Date: 20220725
  Transmission Date: 20221027
  Serious: Yes (Other)
  Sender: FDA-Public Use
  Company Number: JP-PFIZER INC-202200800322

PATIENT
  Sex: Female

DRUGS (1)
  1. ENBREL [Suspect]
     Active Substance: ETANERCEPT
     Indication: Product used for unknown indication
     Dosage: 0.5 MILLILITER, 2 TIMES/WK
     Route: 058
     Dates: start: 202202

REACTIONS (3)
  - Compression fracture [Unknown]
  - Wrong technique in product usage process [Unknown]
  - Device issue [Unknown]
